FAERS Safety Report 6467265-6 (Version None)
Quarter: 2009Q4

REPORT INFORMATION
  Report Type: 
  Country: None (occurrence: None)
  Receive Date: 20091202
  Receipt Date: 20091118
  Transmission Date: 20100525
  Serious: No
  Sender: FDA-Public Use
  Company Number: US-B.I. PHARMACEUTICALS,INC./RIDGEFIELD-2009-BP-12895BP

PATIENT
  Sex: Female

DRUGS (5)
  1. COMBIVENT [Suspect]
     Indication: CHRONIC OBSTRUCTIVE PULMONARY DISEASE
     Dosage: 8 PUF
     Route: 055
     Dates: start: 20091030, end: 20091030
  2. COMBIVENT [Suspect]
     Indication: BRONCHITIS
  3. LOPRESSOR [Concomitant]
     Indication: HYPERTENSION
     Dosage: 100 MG
  4. PAXIL [Concomitant]
     Indication: ANXIETY
     Dosage: 40 MG
  5. LISINOPRIL [Concomitant]
     Indication: HYPERTENSION
     Dosage: 20 MG

REACTIONS (1)
  - URTICARIA [None]
